FAERS Safety Report 8591138-6 (Version None)
Quarter: 2012Q3

REPORT INFORMATION
  Report Type: 
  Country: None (occurrence: None)
  Receive Date: 20120813
  Receipt Date: 20120730
  Transmission Date: 20120928
  Serious: Yes (Other)
  Sender: FDA-Public Use
  Company Number: IT-ROCHE-1098415

PATIENT
  Age: 72 Year
  Sex: Female

DRUGS (3)
  1. RANIBIZUMAB [Suspect]
     Indication: POLYPOIDAL CHOROIDAL VASCULOPATHY
     Route: 050
  2. VERTEPORFIN [Suspect]
     Indication: POLYPOIDAL CHOROIDAL VASCULOPATHY
     Dosage: 2MG/L
  3. POVIDONE IODINE [Concomitant]

REACTIONS (3)
  - DRUG INEFFECTIVE [None]
  - VISUAL ACUITY REDUCED [None]
  - SUBRETINAL FIBROSIS [None]
